FAERS Safety Report 19960029 (Version 2)
Quarter: 2021Q4

REPORT INFORMATION
  Report Type: Spontaneous
  Country: DE (occurrence: DE)
  Receive Date: 20211015
  Receipt Date: 20211117
  Transmission Date: 20220303
  Serious: Yes (Other)
  Sender: FDA-Public Use
  Company Number: DE-RECORDATI-2021004047

PATIENT
  Sex: Female

DRUGS (9)
  1. CARIPRAZINE HYDROCHLORIDE [Suspect]
     Active Substance: CARIPRAZINE HYDROCHLORIDE
     Indication: Product used for unknown indication
     Dosage: 4.5 MILLIGRAM, QD (1-0-0)
     Dates: start: 202109
  2. SERTRALINE [Suspect]
     Active Substance: SERTRALINE HYDROCHLORIDE
     Indication: Product used for unknown indication
     Dosage: UNK
  3. VALDOXAN [Concomitant]
     Active Substance: AGOMELATINE
     Indication: Product used for unknown indication
     Dosage: UNK, QD (0-0-1)
  4. PIPAMPERONE HYDROCHLORIDE [Concomitant]
     Active Substance: PIPAMPERONE HYDROCHLORIDE
     Indication: Product used for unknown indication
     Dosage: 40 MG AS REQUIRED
  5. HERBALS\PLANTAGO OVATA LEAF [Concomitant]
     Active Substance: HERBALS\PLANTAGO OVATA LEAF
     Indication: Product used for unknown indication
  6. LAXANS RPH [Concomitant]
     Indication: Product used for unknown indication
  7. LACTULOSE [Concomitant]
     Active Substance: LACTULOSE
     Indication: Product used for unknown indication
  8. EUTHYROX [Concomitant]
     Active Substance: LEVOTHYROXINE SODIUM
     Indication: Product used for unknown indication
  9. CHOLECALCIFEROL [Concomitant]
     Active Substance: CHOLECALCIFEROL
     Indication: Product used for unknown indication
     Dosage: 20000 IU

REACTIONS (10)
  - Ocular hypertension [Not Recovered/Not Resolved]
  - Oedema peripheral [Not Recovered/Not Resolved]
  - Listless [Not Recovered/Not Resolved]
  - Erythema [Not Recovered/Not Resolved]
  - Pain in extremity [Not Recovered/Not Resolved]
  - Constipation [Not Recovered/Not Resolved]
  - Heart rate increased [Not Recovered/Not Resolved]
  - Musculoskeletal stiffness [Not Recovered/Not Resolved]
  - Asthenia [Not Recovered/Not Resolved]
  - Salivary hypersecretion [Not Recovered/Not Resolved]

NARRATIVE: CASE EVENT DATE: 20210925
